FAERS Safety Report 9635840 (Version 2)
Quarter: 2013Q4

REPORT INFORMATION
  Report Type: Report from Study
  Country: US (occurrence: US)
  Receive Date: 20131021
  Receipt Date: 20131120
  Transmission Date: 20140711
  Serious: Yes (Hospitalization, Other)
  Sender: FDA-Public Use
  Company Number: US-ACTELION-A-US2013-90074

PATIENT
  Age: 62 Year
  Sex: Female

DRUGS (10)
  1. VENTAVIS [Suspect]
     Indication: PULMONARY ARTERIAL HYPERTENSION
     Dosage: 2.5 UNK, UNK
     Route: 055
     Dates: start: 20060201
  2. VENTAVIS [Suspect]
     Dosage: UNK
     Route: 055
  3. SILDENAFIL [Concomitant]
  4. LETAIRIS [Concomitant]
  5. COUMADIN [Concomitant]
  6. KLONOPIN [Concomitant]
  7. LOVASTATIN [Concomitant]
  8. SYNTHROID [Concomitant]
  9. DIGOXIN [Concomitant]
  10. CAPTOPRIL [Concomitant]

REACTIONS (3)
  - Upper limb fracture [Recovered/Resolved]
  - Limb operation [Recovered/Resolved]
  - Fall [Recovered/Resolved]
